FAERS Safety Report 26095686 (Version 2)
Quarter: 2025Q4

REPORT INFORMATION
  Report Type: Spontaneous
  Country: US (occurrence: US)
  Receive Date: 20251127
  Receipt Date: 20251210
  Transmission Date: 20260117
  Serious: Yes (Other)
  Sender: DR REDDYS
  Company Number: US-DRL-USA-USA/2025/11/017770

PATIENT
  Age: 58 Year
  Sex: Female

DRUGS (6)
  1. TACROLIMUS [Suspect]
     Active Substance: TACROLIMUS
     Indication: Immunosuppressant drug therapy
  2. MYCOPHENOLATE MOFETIL [Concomitant]
     Active Substance: MYCOPHENOLATE MOFETIL
     Indication: Immunosuppressant drug therapy
  3. PREDNISONE [Concomitant]
     Active Substance: PREDNISONE
     Indication: Immunosuppressant drug therapy
  4. HALOPERIDOL [Concomitant]
     Active Substance: HALOPERIDOL
     Indication: Delirium
  5. GUANFACINE [Concomitant]
     Active Substance: GUANFACINE
     Indication: Delirium
  6. MELATONIN [Concomitant]
     Active Substance: MELATONIN
     Indication: Delirium

REACTIONS (5)
  - Delirium [Recovering/Resolving]
  - Hallucinations, mixed [Recovered/Resolved]
  - Parasomnia [Recovered/Resolved]
  - Product use in unapproved indication [Unknown]
  - Bradyphrenia [Unknown]
